FAERS Safety Report 24314405 (Version 1)
Quarter: 2024Q3

REPORT INFORMATION
  Report Type: Report from Study
  Country: US (occurrence: US)
  Receive Date: 20240913
  Receipt Date: 20240913
  Transmission Date: 20241016
  Serious: Yes (Other)
  Sender: ABBVIE
  Company Number: US-ABBVIE-5913574

PATIENT
  Age: 28 Year
  Sex: Female

DRUGS (1)
  1. HUMIRA [Suspect]
     Active Substance: ADALIMUMAB
     Indication: Hidradenitis
     Dosage: CITRATE FREE
     Route: 058
     Dates: start: 2020, end: 2020

REACTIONS (9)
  - Intervertebral disc protrusion [Recovering/Resolving]
  - Hidradenitis [Not Recovered/Not Resolved]
  - Injection site vesicles [Recovered/Resolved with Sequelae]
  - Maternal exposure during pregnancy [Unknown]
  - Hypoaesthesia [Unknown]
  - Injection site scar [Recovered/Resolved with Sequelae]
  - Back pain [Unknown]
  - Paraesthesia [Unknown]
  - Live birth [Unknown]

NARRATIVE: CASE EVENT DATE: 20200101
